FAERS Safety Report 7415561-8 (Version None)
Quarter: 2011Q2

REPORT INFORMATION
  Report Type: 
  Country: None (occurrence: None)
  Receive Date: 20110414
  Receipt Date: 20110405
  Transmission Date: 20111010
  Serious: Yes (Other)
  Sender: FDA-Public Use
  Company Number: US-JNJFOC-20110308336

PATIENT
  Sex: Male
  Weight: 97.52 kg

DRUGS (1)
  1. INVEGA [Suspect]
     Indication: SCHIZOAFFECTIVE DISORDER
     Route: 048

REACTIONS (5)
  - DIARRHOEA [None]
  - RENAL IMPAIRMENT [None]
  - BLOOD CALCIUM INCREASED [None]
  - WEIGHT DECREASED [None]
  - LOW DENSITY LIPOPROTEIN ABNORMAL [None]
